FAERS Safety Report 4732565-4 (Version None)
Quarter: 2005Q3

REPORT INFORMATION
  Report Type: 
  Country: None (occurrence: None)
  Receive Date: 20050801
  Receipt Date: 20050801
  Transmission Date: 20060218
  Serious: Yes (Other)
  Sender: FDA-Public Use
  Company Number: None

PATIENT
  Sex: Female
  Weight: 83.9154 kg

DRUGS (4)
  1. EFFEXOR XR [Suspect]
     Indication: ANXIETY
     Dosage: 1/2 CAP   DAILY AT HS   ORAL
     Route: 048
     Dates: start: 20041215, end: 20050721
  2. VITAMINS [Concomitant]
  3. ZYRTEC [Concomitant]
  4. PREVACID [Concomitant]

REACTIONS (4)
  - CONDUCTION DISORDER [None]
  - DIZZINESS [None]
  - DRUG WITHDRAWAL SYNDROME [None]
  - NERVOUS SYSTEM DISORDER [None]
